FAERS Safety Report 9092056 (Version 1)
Quarter: 2013Q1

REPORT INFORMATION
  Report Type: Report from Study
  Country: US (occurrence: US)
  Receive Date: 20130201
  Receipt Date: 20130201
  Transmission Date: 20140127
  Serious: No
  Sender: FDA-Public Use
  Company Number: US-ABBOTT-12P-163-1025471-00

PATIENT
  Age: 61 None
  Sex: Male
  Weight: 93.07 kg

DRUGS (2)
  1. HUMIRA [Suspect]
     Indication: PSORIASIS
     Dates: start: 20101027
  2. HUMIRA [Suspect]
     Indication: PSORIATIC ARTHROPATHY

REACTIONS (10)
  - Malignant tumour excision [Unknown]
  - Knee arthroplasty [Unknown]
  - Mobility decreased [Unknown]
  - Squamous cell carcinoma of skin [Unknown]
  - Tremor [Unknown]
  - Rash macular [Unknown]
  - Arthritis [Unknown]
  - Pain [Unknown]
  - Oedema [Unknown]
  - Arthralgia [Unknown]
